FAERS Safety Report 13827964 (Version 1)
Quarter: 2017Q3

REPORT INFORMATION
  Report Type: Spontaneous
  Country: CA (occurrence: CA)
  Receive Date: 20170803
  Receipt Date: 20170803
  Transmission Date: 20171127
  Serious: Yes (Hospitalization, Other)
  Sender: FDA-Public Use
  Company Number: CA-ORION CORPORATION ORION PHARMA-TREX2017-2186

PATIENT
  Age: 25 Year
  Sex: Male
  Weight: 68.95 kg

DRUGS (12)
  1. INFLECTRA [Suspect]
     Active Substance: INFLIXIMAB-DYYB
     Dosage: CYCLIC (EVERY 4 WEEKS)
     Route: 042
  2. TECTA [Concomitant]
     Active Substance: PANTOPRAZOLE MAGNESIUM
     Route: 065
  3. INFLECTRA [Suspect]
     Active Substance: INFLIXIMAB-DYYB
     Route: 042
     Dates: start: 201707
  4. TYLENOL [Concomitant]
     Active Substance: ACETAMINOPHEN
     Dosage: AT BEDTIME
     Route: 065
  5. PROFERRIN [Concomitant]
     Route: 048
  6. PREDNISONE. [Concomitant]
     Active Substance: PREDNISONE
     Dosage: TAPERING DOSE
     Route: 065
  7. VITAMIN D [Concomitant]
     Active Substance: CHOLECALCIFEROL
     Dosage: 1000UNITS (3 TABLETS)
     Route: 065
  8. INFLECTRA [Suspect]
     Active Substance: INFLIXIMAB-DYYB
     Indication: CROHN^S DISEASE
     Route: 042
     Dates: start: 201706
  9. FOLIC ACID. [Concomitant]
     Active Substance: FOLIC ACID
     Route: 065
  10. CORTIFOAM [Concomitant]
     Active Substance: HYDROCORTISONE ACETATE
     Dosage: 1 DOSE EVERY MORNING PER RECTUM
     Route: 065
  11. METHOTREXATE (TRADE NAME UNKNOWN) [Suspect]
     Active Substance: METHOTREXATE
     Route: 065
  12. METHOTREXATE (TRADE NAME UNKNOWN) [Suspect]
     Active Substance: METHOTREXATE
     Dosage: 2.5 MG, WEEKLY (6 TABLETS)
     Route: 065

REACTIONS (5)
  - Drug ineffective [Unknown]
  - Haematochezia [Unknown]
  - Pericarditis [Unknown]
  - Weight decreased [Unknown]
  - Crohn^s disease [Unknown]

NARRATIVE: CASE EVENT DATE: 20170510
